FAERS Safety Report 13781693 (Version 1)
Quarter: 2017Q3

REPORT INFORMATION
  Report Type: Spontaneous
  Country: PT (occurrence: PT)
  Receive Date: 20170724
  Receipt Date: 20170724
  Transmission Date: 20171127
  Serious: Yes (Other)
  Sender: FDA-Public Use
  Company Number: PT-PFIZER INC-3070959

PATIENT
  Age: 61 Year
  Sex: Female
  Weight: 58 kg

DRUGS (9)
  1. DOCETAXEL ACTAVIS [Suspect]
     Active Substance: DOCETAXEL
     Dosage: 5.714 MG, DAILY
     Route: 042
     Dates: start: 20151021, end: 20151021
  2. CISPLATIN. [Concomitant]
     Active Substance: CISPLATIN
     Indication: LUNG NEOPLASM MALIGNANT
     Dosage: 5.714 MG
     Route: 042
     Dates: start: 20150930, end: 20150930
  3. FOSAPREPITANT DIMEGLUMINE [Concomitant]
     Active Substance: FOSAPREPITANT DIMEGLUMINE
     Indication: PROPHYLAXIS OF NAUSEA AND VOMITING
     Dosage: UNK
     Route: 042
     Dates: start: 20150930, end: 20151021
  4. MAGNESIUM SULPHATE /07507001/ [Concomitant]
     Active Substance: MAGNESIUM SULFATE
     Indication: LUNG NEOPLASM MALIGNANT
     Dosage: UNK
     Route: 042
     Dates: start: 20150930, end: 20151021
  5. PREDNISOLONE. [Concomitant]
     Active Substance: PREDNISOLONE
     Indication: ALLERGY PROPHYLAXIS
     Dosage: UNK
     Route: 048
     Dates: start: 201509, end: 201510
  6. DOCETAXEL ACTAVIS [Suspect]
     Active Substance: DOCETAXEL
     Indication: LUNG NEOPLASM MALIGNANT
     Dosage: 120 MG, FREQ: 1 WEEK, INTERVAL: 3
     Route: 042
     Dates: start: 20151210, end: 20151210
  7. CLEMASTIN [Concomitant]
     Active Substance: CLEMASTINE
     Indication: ALLERGY PROPHYLAXIS
     Dosage: UNK
     Route: 048
     Dates: start: 201509, end: 201510
  8. DEXAMETHASONE. [Concomitant]
     Active Substance: DEXAMETHASONE
     Indication: ALLERGY PROPHYLAXIS
     Dosage: 10 MG
     Dates: start: 20150930, end: 20151021
  9. DOCETAXEL. [Suspect]
     Active Substance: DOCETAXEL
     Indication: LUNG NEOPLASM MALIGNANT
     Dosage: 5.714 MG, DAILY
     Route: 042
     Dates: start: 20150930, end: 20150930

REACTIONS (14)
  - Drug hypersensitivity [Unknown]
  - Malaise [Recovering/Resolving]
  - Cough [Unknown]
  - Chemical burn of skin [Not Recovered/Not Resolved]
  - Erythema [Unknown]
  - Injection site discolouration [Not Recovered/Not Resolved]
  - Injection site pruritus [Unknown]
  - Drug hypersensitivity [Recovering/Resolving]
  - Back pain [Recovering/Resolving]
  - Chest pain [Unknown]
  - Injection site erythema [Not Recovered/Not Resolved]
  - Back pain [Unknown]
  - Acne [Unknown]
  - Respiratory distress [Recovering/Resolving]

NARRATIVE: CASE EVENT DATE: 20150930
